FAERS Safety Report 9331950 (Version 2)
Quarter: 2013Q3

REPORT INFORMATION
  Report Type: Spontaneous
  Country: US (occurrence: US)
  Receive Date: 20130605
  Receipt Date: 20130808
  Transmission Date: 20140515
  Serious: Yes (Disabling, Other)
  Sender: FDA-Public Use
  Company Number: CHPA2013US009312

PATIENT
  Age: 59 Year
  Sex: Female

DRUGS (2)
  1. DESENEX PRESCRIPTIONSTRENGTH ANTIFPOWDER [Suspect]
     Indication: ONYCHOMYCOSIS
     Dosage: UNK DOSE APPLIED TO FEET AND TOES, ONCE PER DAY AS NEEDED
     Route: 061
     Dates: start: 1974
  2. DESENEX PRESCRIPTIONSTRENGTH ANTIFPOWDER [Suspect]
     Indication: TINEA PEDIS

REACTIONS (6)
  - Neuromyelitis optica [Not Recovered/Not Resolved]
  - Blindness [Not Recovered/Not Resolved]
  - Optic neuritis [Not Recovered/Not Resolved]
  - Eye irritation [Not Recovered/Not Resolved]
  - Onychomycosis [Not Recovered/Not Resolved]
  - Off label use [Unknown]
